FAERS Safety Report 9421860 (Version 1)
Quarter: 2013Q3

REPORT INFORMATION
  Report Type: Spontaneous
  Country: US (occurrence: None)
  Receive Date: 20130724
  Receipt Date: 20130724
  Transmission Date: 20140515
  Serious: No
  Sender: FDA-Public Use
  Company Number: None

PATIENT
  Age: 53 Year
  Sex: Female
  Weight: 83.92 kg

DRUGS (1)
  1. NATURE-THYROID [Suspect]
     Indication: HYPOTHYROIDISM
     Dosage: 65MG 1 1/2 TABS ONCE DAILY ORAL

REACTIONS (4)
  - Blood thyroid stimulating hormone decreased [None]
  - Blood thyroid stimulating hormone increased [None]
  - Drug effect decreased [None]
  - Product quality issue [None]
